FAERS Safety Report 15177998 (Version 1)
Quarter: 2018Q3

REPORT INFORMATION
  Report Type: Report from Study
  Country: None (occurrence: BR)
  Receive Date: 20180721
  Receipt Date: 20180721
  Transmission Date: 20181010
  Serious: Yes (Hospitalization, Other)
  Sender: FDA-Public Use
  Company Number: BR-ABBVIE-18K-020-2422526-00

PATIENT
  Sex: Female
  Weight: 72 kg

DRUGS (12)
  1. SELOZOK [Concomitant]
     Active Substance: METOPROLOL SUCCINATE
     Indication: ARRHYTHMIA
  2. DIPYRONE [Concomitant]
     Active Substance: DIPYRONE
     Indication: PAIN
  3. DAPTOMYCIN. [Concomitant]
     Active Substance: DAPTOMYCIN
     Indication: INFLAMMATION
  4. PREGABALIN. [Concomitant]
     Active Substance: PREGABALIN
     Indication: INFLAMMATION
  5. PROFENID [Concomitant]
     Active Substance: KETOPROFEN
     Indication: PAIN
  6. BUPROPION. [Concomitant]
     Active Substance: BUPROPION
     Indication: RHEUMATOID ARTHRITIS
  7. MEROPENEM. [Concomitant]
     Active Substance: MEROPENEM
     Indication: INFLAMMATION
  8. DONAREN [Concomitant]
     Active Substance: TRAZODONE HYDROCHLORIDE
     Indication: RHEUMATOID ARTHRITIS
  9. ALPRAZOLAM. [Concomitant]
     Active Substance: ALPRAZOLAM
     Indication: RHEUMATOID ARTHRITIS
  10. AZULFIDINE [Concomitant]
     Active Substance: SULFASALAZINE
     Indication: IMMUNE ENHANCEMENT THERAPY
  11. BROMOPRIDE [Concomitant]
     Active Substance: BROMOPRIDE
     Indication: ABDOMINAL PAIN UPPER
  12. HUMIRA [Suspect]
     Active Substance: ADALIMUMAB
     Indication: RHEUMATOID ARTHRITIS
     Route: 058
     Dates: start: 20150101, end: 20171215

REACTIONS (2)
  - Thyroid neoplasm [Recovering/Resolving]
  - Thyroid mass [Recovering/Resolving]
